FAERS Safety Report 4802225-X (Version None)
Quarter: 2005Q4

REPORT INFORMATION
  Report Type: 
  Country: None (occurrence: None)
  Receive Date: 20051012
  Receipt Date: 20050926
  Transmission Date: 20060501
  Serious: Yes (Hospitalization, Other)
  Sender: FDA-Public Use
  Company Number: 2005BI009858

PATIENT
  Age: 52 Year
  Sex: Female

DRUGS (1)
  1. AVONEX [Suspect]
     Indication: MULTIPLE SCLEROSIS
     Dosage: IM
     Route: 030
     Dates: start: 20050401

REACTIONS (7)
  - ASTHENIA [None]
  - DEHYDRATION [None]
  - FEELING ABNORMAL [None]
  - GALLBLADDER DISORDER [None]
  - HEPATIC TRAUMA [None]
  - IATROGENIC INJURY [None]
  - INTESTINAL PERFORATION [None]
